FAERS Safety Report 8141996-4 (Version None)
Quarter: 2012Q1

REPORT INFORMATION
  Report Type: 
  Country: None (occurrence: None)
  Receive Date: 20120216
  Receipt Date: 20120215
  Transmission Date: 20120608
  Serious: Yes (Death)
  Sender: FDA-Public Use
  Company Number: IT-PFIZER INC-2012021553

PATIENT
  Age: 26 Year
  Sex: Female

DRUGS (4)
  1. METHADONE HCL [Suspect]
     Dosage: UNK
  2. ZOLOFT [Suspect]
     Dosage: UNK
  3. NOZINAN [Suspect]
     Dosage: UNK
  4. EN [Suspect]
     Dosage: UNK

REACTIONS (1)
  - TOXICITY TO VARIOUS AGENTS [None]
